FAERS Safety Report 7888401-0 (Version None)
Quarter: 2011Q4

REPORT INFORMATION
  Report Type: 
  Country: None (occurrence: None)
  Receive Date: 20111101
  Receipt Date: 20111014
  Transmission Date: 20120403
  Serious: Yes (Other)
  Sender: FDA-Public Use
  Company Number: 2011RR-44285

PATIENT
  Age: 39 Year
  Sex: Male

DRUGS (9)
  1. DIAZEPAM [Suspect]
     Indication: PAIN
     Dosage: ORAL
     Route: 048
     Dates: start: 20090101, end: 20100101
  2. ATORVASTATIN CALCIUM [Concomitant]
  3. CYMBALTA [Concomitant]
  4. LYRICA [Concomitant]
  5. KETAMINE HCL [Concomitant]
  6. GABAPENTIN [Suspect]
     Indication: NEURALGIA
     Dosage: 3600 MG, QID, ORAL
     Route: 048
     Dates: start: 20090220, end: 20090912
  7. METADONE (METADONE) [Concomitant]
  8. HJERDYL (ACETYLSALICYLIC ACID) [Concomitant]
  9. CYMBALTA [Suspect]
     Indication: PAIN
     Dosage: ORAL
     Route: 048
     Dates: start: 20090101, end: 20100101

REACTIONS (5)
  - TOOTH DISORDER [None]
  - DISTURBANCE IN ATTENTION [None]
  - FINE MOTOR DELAY [None]
  - DRUG INEFFECTIVE [None]
  - ERECTILE DYSFUNCTION [None]
